FAERS Safety Report 8447178-0 (Version None)
Quarter: 2012Q2

REPORT INFORMATION
  Report Type: 
  Country: None (occurrence: None)
  Receive Date: 20120619
  Receipt Date: 20110906
  Transmission Date: 20120825
  Serious: No
  Sender: FDA-Public Use
  Company Number: US-PFIZER INC-K201101043

PATIENT
  Sex: Female
  Weight: 67.574 kg

DRUGS (3)
  1. VITAMIN D [Concomitant]
     Indication: SUPPLEMENTATION THERAPY
     Dosage: 400 IU, 1X/DAY
  2. CALCIUM [Concomitant]
     Indication: SUPPLEMENTATION THERAPY
     Dosage: 1000 MG, 1X/DAY
  3. LEVOXYL [Suspect]
     Indication: THYROID DISORDER
     Dosage: 20 MG, 1X/DAY
     Route: 048

REACTIONS (1)
  - RASH GENERALISED [None]
